FAERS Safety Report 16675879 (Version 2)
Quarter: 2019Q3

REPORT INFORMATION
  Report Type: Spontaneous
  Country: JP (occurrence: JP)
  Receive Date: 20190807
  Receipt Date: 20190904
  Transmission Date: 20191004
  Serious: Yes (Other)
  Sender: FDA-Public Use
  Company Number: JP-BEH-2019105114

PATIENT
  Age: 8 Year
  Sex: Female
  Weight: 20 kg

DRUGS (4)
  1. BERINERT P [Suspect]
     Active Substance: HUMAN C1-ESTERASE INHIBITOR
     Dosage: 300 (60% OF THE CONTENTS IN A VIAL)
     Route: 042
     Dates: start: 20190724
  2. BERINERT P [Suspect]
     Active Substance: HUMAN C1-ESTERASE INHIBITOR
     Indication: HEREDITARY ANGIOEDEMA
     Dosage: 400 (80% OF THE CONTENTS IN A VIAL)
     Route: 042
     Dates: start: 20190724
  3. BERINERT P [Suspect]
     Active Substance: HUMAN C1-ESTERASE INHIBITOR
     Indication: HEREDITARY ANGIOEDEMA
     Dosage: 400 (80% OF THE CONTENTS IN A VIAL)
     Route: 042
     Dates: start: 20190724
  4. BERINERT P [Suspect]
     Active Substance: HUMAN C1-ESTERASE INHIBITOR
     Dosage: 300 (60% OF THE CONTENTS IN A VIAL)
     Route: 042
     Dates: start: 20190724

REACTIONS (1)
  - Drug ineffective [Unknown]

NARRATIVE: CASE EVENT DATE: 20190724
